FAERS Safety Report 23987884 (Version 4)
Quarter: 2024Q3

REPORT INFORMATION
  Report Type: Spontaneous
  Country: US (occurrence: US)
  Receive Date: 20240619
  Receipt Date: 20240930
  Transmission Date: 20241017
  Serious: No
  Sender: SANDOZ
  Company Number: US-SANDOZ-SDZ2024US058312

PATIENT
  Sex: Female

DRUGS (1)
  1. ALBUTEROL SULFATE [Suspect]
     Active Substance: ALBUTEROL SULFATE
     Indication: Asthma
     Dosage: 2 PUFFS PER MOUTH EVERY 4 HOURS AS NEEDED
     Route: 055

REACTIONS (3)
  - Injury associated with device [Unknown]
  - Device physical property issue [Unknown]
  - Device use issue [Unknown]
